FAERS Safety Report 19501321 (Version 1)
Quarter: 2021Q3

REPORT INFORMATION
  Report Type: Spontaneous
  Country: CN (occurrence: CN)
  Receive Date: 20210707
  Receipt Date: 20210707
  Transmission Date: 20211014
  Serious: Yes (Other)
  Sender: FDA-Public Use
  Company Number: CN-ROCHE-2859259

PATIENT
  Age: 66 Year
  Sex: Female

DRUGS (11)
  1. KADCYLA [Suspect]
     Active Substance: ADO-TRASTUZUMAB EMTANSINE
     Indication: BREAST CANCER
     Dosage: DAY1
     Route: 065
     Dates: start: 20201112
  2. PACLITAXEL. [Concomitant]
     Active Substance: PACLITAXEL
     Indication: BREAST CANCER
     Dosage: DAY1, DAY8
     Dates: start: 20181124, end: 20190726
  3. XELODA [Suspect]
     Active Substance: CAPECITABINE
     Dosage: FROM DAY 1 TO DAY 14
     Route: 048
     Dates: start: 20190910
  4. PYROTINIB [Concomitant]
     Active Substance: PYROTINIB
     Indication: BREAST CANCER
     Dates: start: 20190820
  5. LETROZOLE. [Concomitant]
     Active Substance: LETROZOLE
     Route: 048
     Dates: start: 20201203
  6. HERCEPTIN [Suspect]
     Active Substance: TRASTUZUMAB
     Indication: BREAST CANCER
     Dosage: FIRST DOSE 420 MG, THEN 315 MG, DAY1
     Route: 065
     Dates: start: 20181124
  7. AVASTIN [Suspect]
     Active Substance: BEVACIZUMAB
     Dosage: DAY1
     Route: 065
     Dates: start: 20210508
  8. PALBOCICLIB [Concomitant]
     Active Substance: PALBOCICLIB
     Indication: BREAST CANCER
     Dates: start: 201709
  9. AVASTIN [Suspect]
     Active Substance: BEVACIZUMAB
     Indication: BREAST CANCER
     Dosage: DAY1
     Route: 065
     Dates: start: 20201112, end: 20201224
  10. XELODA [Suspect]
     Active Substance: CAPECITABINE
     Indication: BREAST CANCER
     Dosage: FROM DAY 1 TO DAY 14
     Route: 048
     Dates: start: 20190820
  11. FULVESTRANT. [Concomitant]
     Active Substance: FULVESTRANT
     Indication: BREAST CANCER
     Dates: start: 201709

REACTIONS (2)
  - Pyrexia [Unknown]
  - Myelosuppression [Unknown]
